FAERS Safety Report 12315618 (Version 1)
Quarter: 2016Q2

REPORT INFORMATION
  Report Type: Spontaneous
  Country: IT (occurrence: IT)
  Receive Date: 20160428
  Receipt Date: 20160428
  Transmission Date: 20160815
  Serious: Yes (Other)
  Sender: FDA-Public Use
  Company Number: IT-TEVA-655364ACC

PATIENT
  Age: 46 Year
  Sex: Female

DRUGS (9)
  1. RIVOTRIL [Suspect]
     Active Substance: CLONAZEPAM
     Indication: EPILEPSY
     Dosage: 3 MILLIGRAM DAILY;
     Route: 048
     Dates: start: 20140101, end: 20160405
  2. SERENASE - ISTITUTO LUSO FARMACO D^ITALIA S.P.A. [Suspect]
     Active Substance: HALOPERIDOL
     Indication: AGITATION
     Dosage: 15 MILLIGRAM DAILY;
     Route: 048
     Dates: start: 20140101, end: 20160405
  3. TEGRETOL [Suspect]
     Active Substance: CARBAMAZEPINE
     Indication: EPILEPSY
     Dosage: 1000 MILLIGRAM DAILY;
     Route: 048
     Dates: start: 20140101, end: 20160405
  4. LARGACTIL - TEOFARMA S.R.L. [Suspect]
     Active Substance: CHLORPROMAZINE
     Indication: HALLUCINATION, VISUAL
     Dosage: 200 MILLIGRAM DAILY;
     Route: 048
     Dates: start: 20140101, end: 20160405
  5. TALOFEN [Suspect]
     Active Substance: PROMAZINE HYDROCHLORIDE
     Indication: AGITATION
     Dosage: 1 GTT DAILY;
     Route: 048
     Dates: start: 20140101, end: 20160405
  6. NEULEPTIL - TEOFARMA S.R.L. [Suspect]
     Active Substance: PERICIAZINE
     Indication: ACUTE PSYCHOSIS
     Dosage: 30 MILLIGRAM DAILY;
     Route: 048
     Dates: start: 20140101, end: 20160405
  7. SEROQUEL [Suspect]
     Active Substance: QUETIAPINE FUMARATE
     Indication: SCHIZOPHRENIA
     Dosage: 800 MILLIGRAM DAILY;
     Route: 048
     Dates: start: 20140101, end: 20160405
  8. AKINETON [Suspect]
     Active Substance: BIPERIDEN HYDROCHLORIDE
     Indication: TREMOR
     Dosage: 4 MILLIGRAM DAILY;
     Route: 048
     Dates: start: 20140101, end: 20160405
  9. GABAPENTIN. [Suspect]
     Active Substance: GABAPENTIN
     Indication: EPILEPSY
     Dosage: 1200 MILLIGRAM DAILY;
     Route: 048
     Dates: start: 20140101, end: 20160405

REACTIONS (4)
  - Confusional state [Recovering/Resolving]
  - Disorganised speech [Recovering/Resolving]
  - Stereotypy [Recovering/Resolving]
  - Tremor [Recovering/Resolving]

NARRATIVE: CASE EVENT DATE: 20160405
